FAERS Safety Report 18175612 (Version 21)
Quarter: 2022Q4

REPORT INFORMATION
  Report Type: Report from Study
  Country: CA (occurrence: CA)
  Receive Date: 20200820
  Receipt Date: 20221207
  Transmission Date: 20230113
  Serious: Yes (Other)
  Sender: FDA-Public Use
  Company Number: CA-BRISTOL-MYERS SQUIBB COMPANY-BMS-2019-000964

PATIENT
  Age: 79 Year
  Sex: Female
  Weight: 65.00 kg

DRUGS (15)
  1. ORENCIA [Suspect]
     Active Substance: ABATACEPT
     Indication: Rheumatoid arthritis
     Route: 042
     Dates: start: 20181109
  2. ORENCIA [Suspect]
     Active Substance: ABATACEPT
     Route: 042
  3. ORENCIA [Suspect]
     Active Substance: ABATACEPT
     Route: 042
     Dates: start: 20181204
  4. ORENCIA [Suspect]
     Active Substance: ABATACEPT
     Route: 042
  5. ORENCIA [Suspect]
     Active Substance: ABATACEPT
     Route: 042
  6. ORENCIA [Suspect]
     Active Substance: ABATACEPT
     Route: 042
  7. ORENCIA [Suspect]
     Active Substance: ABATACEPT
     Route: 042
  8. ORENCIA [Suspect]
     Active Substance: ABATACEPT
     Route: 042
     Dates: start: 20221006
  9. ORENCIA [Suspect]
     Active Substance: ABATACEPT
     Route: 042
     Dates: start: 20221107
  10. AMIODARONE [Concomitant]
     Active Substance: AMIODARONE
     Indication: Product used for unknown indication
     Route: 065
  11. BISOPROLOL [Concomitant]
     Active Substance: BISOPROLOL
     Indication: Product used for unknown indication
     Route: 065
  12. ERGOCALCIFEROL [Concomitant]
     Active Substance: ERGOCALCIFEROL
     Indication: Product used for unknown indication
     Route: 065
  13. PLAQUENIL [Concomitant]
     Active Substance: HYDROXYCHLOROQUINE SULFATE
     Indication: Product used for unknown indication
     Route: 065
  14. NEXIUM I.V. [Concomitant]
     Active Substance: ESOMEPRAZOLE SODIUM
     Indication: Product used for unknown indication
     Route: 065
  15. AMLODIPINE [Concomitant]
     Active Substance: AMLODIPINE BESYLATE
     Indication: Product used for unknown indication
     Route: 065

REACTIONS (22)
  - Neoplasm malignant [Unknown]
  - Heart rate decreased [Recovered/Resolved]
  - Oropharyngeal pain [Recovered/Resolved]
  - Hypertension [Unknown]
  - Nausea [Unknown]
  - Abdominal discomfort [Unknown]
  - Off label use [Not Recovered/Not Resolved]
  - Pain [Not Recovered/Not Resolved]
  - Blood pressure systolic increased [Not Recovered/Not Resolved]
  - Sinusitis [Unknown]
  - Fatigue [Unknown]
  - Lethargy [Unknown]
  - Cough [Not Recovered/Not Resolved]
  - Chest discomfort [Unknown]
  - Dyspnoea [Unknown]
  - Headache [Unknown]
  - Nasopharyngitis [Recovering/Resolving]
  - Poor venous access [Unknown]
  - Arthralgia [Unknown]
  - Flank pain [Unknown]
  - Blood pressure increased [Unknown]
  - Incorrect drug administration rate [Unknown]

NARRATIVE: CASE EVENT DATE: 20190115
